FAERS Safety Report 10071964 (Version 2)
Quarter: 2014Q2

REPORT INFORMATION
  Report Type: Spontaneous
  Country: IT (occurrence: IT)
  Receive Date: 20140411
  Receipt Date: 20140602
  Transmission Date: 20141212
  Serious: Yes (Hospitalization)
  Sender: FDA-Public Use
  Company Number: IT-BRISTOL-MYERS SQUIBB COMPANY-20591319

PATIENT
  Age: 78 Year
  Sex: Female

DRUGS (5)
  1. COUMADIN TABS 5 MG [Suspect]
     Indication: ATRIAL FIBRILLATION
     Route: 048
     Dates: start: 20100101, end: 20140327
  2. ARCOXIA [Interacting]
     Indication: BACK PAIN
     Route: 048
     Dates: start: 20140322, end: 20140327
  3. EUTIROX [Concomitant]
     Dosage: TABS
  4. LANOXIN [Concomitant]
  5. KARVEA [Concomitant]

REACTIONS (2)
  - Hypocoagulable state [Recovering/Resolving]
  - Drug interaction [Recovering/Resolving]
